FAERS Safety Report 5695823-5 (Version None)
Quarter: 2008Q2

REPORT INFORMATION
  Report Type: 
  Country: None (occurrence: None)
  Receive Date: 20080407
  Receipt Date: 20080326
  Transmission Date: 20081010
  Serious: Yes (Other)
  Sender: FDA-Public Use
  Company Number: US-JNJFOC-20080203350

PATIENT
  Sex: Female
  Weight: 56.7 kg

DRUGS (10)
  1. FENTANYL TRANSDERMAL SYSTEM [Suspect]
     Route: 062
  2. FENTANYL TRANSDERMAL SYSTEM [Suspect]
     Route: 062
  3. FENTANYL TRANSDERMAL SYSTEM [Suspect]
     Indication: OSTEOARTHRITIS
     Route: 062
  4. SEROQUEL [Concomitant]
     Indication: BIPOLAR DISORDER
     Route: 048
  5. LAMICTAL [Concomitant]
     Indication: BIPOLAR DISORDER
     Route: 048
  6. THALLIUM [Concomitant]
     Indication: BIPOLAR DISORDER
     Route: 048
  7. MYSOLINE [Concomitant]
     Indication: BIPOLAR DISORDER
     Route: 048
  8. SYNTHROID [Concomitant]
     Indication: BIPOLAR DISORDER
     Route: 048
  9. SALICYLATE [Concomitant]
     Indication: OSTEOARTHRITIS
     Route: 048
  10. ATIVAN [Concomitant]
     Indication: BIPOLAR DISORDER
     Route: 065

REACTIONS (5)
  - ATAXIA [None]
  - DIZZINESS [None]
  - DRUG INEFFECTIVE [None]
  - GAIT DISTURBANCE [None]
  - SEDATION [None]
